FAERS Safety Report 9547982 (Version 1)
Quarter: 2013Q2

REPORT INFORMATION
  Report Type: Spontaneous
  Country: US (occurrence: None)
  Receive Date: 20130627
  Receipt Date: 20130627
  Transmission Date: 20140414
  Serious: No
  Sender: FDA-Public Use
  Company Number: 1000043276

PATIENT
  Age: 65 Year
  Sex: Female

DRUGS (8)
  1. LINZESS (LINACLOTIDE) (145 MICROGRAM, CAPSULES) [Suspect]
     Indication: CONSTIPATION
     Route: 048
     Dates: start: 20130301
  2. TRAMADOL (TRAMADOL) [Concomitant]
  3. XANAX [Concomitant]
  4. METFORMIN (METFORMIN) [Concomitant]
  5. VESICARE (SOLIFENACIN SUCCINATE) (SOLIFENACIN SUCCINATE) [Concomitant]
  6. HYDROCHLOROTHIAZIDE (HYDROCHLOROTHIAZIDE) [Concomitant]
  7. PRILOSEC (OMEPRAZOLE) (OMEPRAZOLE) [Concomitant]
  8. LEXAPRO (ESCITALOPRAM OXALATE) (ESCITALOPRAM OXALATE) [Concomitant]

REACTIONS (2)
  - Abdominal distension [None]
  - Flatulence [None]
